FAERS Safety Report 5506627-8 (Version None)
Quarter: 2007Q4

REPORT INFORMATION
  Report Type: 
  Country: None (occurrence: None)
  Receive Date: 20071105
  Receipt Date: 20071023
  Transmission Date: 20080405
  Serious: Yes (Life-Threatening, Hospitalization)
  Sender: FDA-Public Use
  Company Number: GB-ROCHE-515527

PATIENT
  Age: 49 Year
  Sex: Female

DRUGS (6)
  1. COPEGUS [Suspect]
     Indication: CRYOGLOBULINAEMIA
     Route: 048
     Dates: start: 20070530, end: 20070608
  2. PEGASYS [Suspect]
     Indication: CRYOGLOBULINAEMIA
     Route: 058
     Dates: start: 20070530, end: 20070608
  3. OLANZAPINE [Concomitant]
     Route: 048
  4. ACETAMINOPHEN [Concomitant]
     Route: 048
  5. THIAMINE [Concomitant]
     Route: 048
  6. VITAMIN B CO [Concomitant]
     Route: 048

REACTIONS (2)
  - CENTRAL PONTINE MYELINOLYSIS [None]
  - HEPATITIS [None]
